FAERS Safety Report 9487015 (Version 1)
Quarter: 2013Q3

REPORT INFORMATION
  Report Type: Spontaneous
  Country: JP (occurrence: JP)
  Receive Date: 20130829
  Receipt Date: 20130829
  Transmission Date: 20140515
  Serious: Yes (Other)
  Sender: FDA-Public Use
  Company Number: JP-GLAXOSMITHKLINE-B0918100A

PATIENT
  Sex: 0

DRUGS (2)
  1. SERETIDE (50MCG/250MCG) [Suspect]
     Indication: PRODUCT USED FOR UNKNOWN INDICATION
     Route: 055
  2. MULTIPLE DRUGS [Concomitant]
     Route: 065

REACTIONS (1)
  - Renal impairment [Unknown]
